FAERS Safety Report 4480334-5 (Version None)
Quarter: 2004Q3

REPORT INFORMATION
  Report Type: 
  Country: None (occurrence: None)
  Receive Date: 20040923
  Receipt Date: 20040601
  Transmission Date: 20050211
  Serious: No
  Sender: FDA-Public Use
  Company Number: USA040568025

PATIENT
  Age: 86 Year
  Sex: Female

DRUGS (12)
  1. FORTEO [Suspect]
     Indication: OSTEOPOROSIS
     Dosage: 20 UG DAY
     Dates: start: 20040416
  2. EFFEXOR [Concomitant]
  3. EXELON [Concomitant]
  4. PLAVIX [Concomitant]
  5. OSCAL (CALCIUM CARBONATE) [Concomitant]
  6. FOLIC ACID [Concomitant]
  7. ASPIRIN [Concomitant]
  8. ATENOLOL [Concomitant]
  9. HYDROCHLOROTHIAZIDE [Concomitant]
  10. MVI (MVI) [Concomitant]
  11. MIACALCIN [Concomitant]
  12. FIORINAL [Concomitant]

REACTIONS (2)
  - HEADACHE [None]
  - INJECTION SITE HAEMORRHAGE [None]
